FAERS Safety Report 5992033-9 (Version None)
Quarter: 2008Q4

REPORT INFORMATION
  Report Type: 
  Country: None (occurrence: None)
  Receive Date: 20081211
  Receipt Date: 20080510
  Transmission Date: 20090506
  Serious: No
  Sender: FDA-Public Use
  Company Number: US-AMGEN-KDL278588

PATIENT
  Sex: Female

DRUGS (1)
  1. ENBREL [Suspect]
     Indication: RHEUMATOID ARTHRITIS
     Route: 058
     Dates: start: 20070824

REACTIONS (18)
  - ARTHRALGIA [None]
  - COUGH [None]
  - DYSPHONIA [None]
  - EAR DISORDER [None]
  - FALL [None]
  - INTERVERTEBRAL DISC PROTRUSION [None]
  - JOINT EFFUSION [None]
  - JOINT INJURY [None]
  - MUSCULOSKELETAL PAIN [None]
  - NIGHT SWEATS [None]
  - OPEN WOUND [None]
  - PAIN IN EXTREMITY [None]
  - ROAD TRAFFIC ACCIDENT [None]
  - SCAR [None]
  - SKIN DISORDER [None]
  - STAPHYLOCOCCAL INFECTION [None]
  - WALKING AID USER [None]
  - WEIGHT DECREASED [None]
